FAERS Safety Report 13337774 (Version 6)
Quarter: 2018Q1

REPORT INFORMATION
  Report Type: Report from Study
  Country: None (occurrence: CA)
  Receive Date: 20170315
  Receipt Date: 20180321
  Transmission Date: 20180508
  Serious: Yes (Death, Other)
  Sender: FDA-Public Use
  Company Number: CA-ABBVIE-17P-028-1904102-00

PATIENT
  Age: 55 Year
  Sex: Male
  Weight: 71 kg

DRUGS (10)
  1. EPREX [Concomitant]
     Active Substance: ERYTHROPOIETIN
     Indication: RENAL DISORDER
     Route: 058
     Dates: start: 20170220
  2. MODERIBA [Suspect]
     Active Substance: RIBAVIRIN
     Indication: CHRONIC HEPATITIS C
     Route: 048
     Dates: start: 20170117
  3. FOLIC ACID. [Concomitant]
     Active Substance: FOLIC ACID
     Indication: RENAL DISORDER
     Route: 048
     Dates: start: 20170117
  4. LANTUS [Concomitant]
     Active Substance: INSULIN GLARGINE
     Indication: DIABETES MELLITUS
     Dosage: HS
     Route: 058
  5. SENOKOT [Concomitant]
     Active Substance: SENNOSIDES
     Indication: CONSTIPATION
     Dosage: 1-2 TABLETS
     Dates: start: 20170220
  6. HOLKIRA PAK [Suspect]
     Active Substance: DASABUVIR\OMBITASVIR\PARITAPREVIR\RITONAVIR
     Indication: CHRONIC HEPATITIS C
     Dosage: TWO OMBITASVIR/PARITAPREVIR/RITONAVIR 12.5/75/50MG TABS 1/D AND  DASABUVIR 250 MG TABS 2/D
     Route: 048
     Dates: start: 20170117
  7. HUMALOG [Concomitant]
     Active Substance: INSULIN LISPRO
     Indication: DIABETES MELLITUS
     Dosage: SELF ADJUSTED
     Route: 058
  8. CALCIUM CARBONATE. [Concomitant]
     Active Substance: CALCIUM CARBONATE
     Indication: RENAL DISORDER
     Route: 048
     Dates: start: 20170220
  9. PANTOPRAZOLE [Concomitant]
     Active Substance: PANTOPRAZOLE
     Indication: GASTROOESOPHAGEAL REFLUX DISEASE
     Route: 048
     Dates: start: 20170220
  10. REPLAVITE [Concomitant]
     Indication: RENAL DISORDER
     Route: 048
     Dates: start: 20170220

REACTIONS (4)
  - Hyperkalaemia [Fatal]
  - End stage renal disease [Fatal]
  - Electrolyte imbalance [Fatal]
  - Chronic lymphocytic leukaemia [Not Recovered/Not Resolved]

NARRATIVE: CASE EVENT DATE: 20170221
